FAERS Safety Report 13567527 (Version 2)
Quarter: 2017Q3

REPORT INFORMATION
  Report Type: Spontaneous
  Country: US (occurrence: US)
  Receive Date: 20170522
  Receipt Date: 20170714
  Transmission Date: 20171127
  Serious: Yes (Other)
  Sender: FDA-Public Use
  Company Number: US-PFIZER INC-2017219808

PATIENT
  Age: 68 Year
  Sex: Female
  Weight: 58.97 kg

DRUGS (2)
  1. IBRANCE [Suspect]
     Active Substance: PALBOCICLIB
     Dosage: 125 MG, CYCLIC [ONCE A DAY FOR 3 WKS THAN OFF 1 WKS]
     Route: 048
     Dates: start: 20161215
  2. IBRANCE [Suspect]
     Active Substance: PALBOCICLIB
     Indication: NEOPLASM MALIGNANT
     Dosage: 125 MG, CYCLIC (THREE WEEKS ON AND ONE WEEK OFF)
     Route: 048
     Dates: start: 201612

REACTIONS (3)
  - Fatigue [Recovered/Resolved]
  - Drug dose omission [Unknown]
  - Pneumonia [Recovering/Resolving]

NARRATIVE: CASE EVENT DATE: 20170501
